FAERS Safety Report 4816765-0 (Version None)
Quarter: 2005Q4

REPORT INFORMATION
  Report Type: 
  Country: None (occurrence: None)
  Receive Date: 20051028
  Receipt Date: 20051017
  Transmission Date: 20060501
  Serious: Yes (Other)
  Sender: FDA-Public Use
  Company Number: 2005143294

PATIENT
  Age: 65 Year
  Sex: Male
  Weight: 93.441 kg

DRUGS (5)
  1. ZMAX [Suspect]
     Indication: SINUS DISORDER
     Dosage: (1 IN 1 D), ORAL
     Route: 048
     Dates: start: 20051001, end: 20051001
  2. VALSARTAN [Concomitant]
  3. ASPIRIN [Concomitant]
  4. TAMSULOSIN HYDROCHLORIDE (TAMSULOSIN HYDROCHLORIDE) [Concomitant]
  5. PLAVIX [Concomitant]

REACTIONS (5)
  - DRUG INEFFECTIVE [None]
  - FEELING ABNORMAL [None]
  - HEMIPARESIS [None]
  - MOVEMENT DISORDER [None]
  - RENAL DISORDER [None]
